FAERS Safety Report 5944555-4 (Version None)
Quarter: 2008Q4

REPORT INFORMATION
  Report Type: 
  Country: None (occurrence: None)
  Receive Date: 20081105
  Receipt Date: 20081029
  Transmission Date: 20090506
  Serious: Yes (Life-Threatening, Other)
  Sender: FDA-Public Use
  Company Number: 2008SP002651

PATIENT
  Age: 51 Year
  Sex: Male
  Weight: 85.3 kg

DRUGS (16)
  1. LUNESTA [Suspect]
     Indication: INSOMNIA
     Dosage: 3 MG;HS;ORAL, 1X;ORAL
     Route: 048
     Dates: start: 20071107, end: 20080101
  2. LUNESTA [Suspect]
     Indication: INSOMNIA
     Dosage: 3 MG;HS;ORAL, 1X;ORAL
     Route: 048
     Dates: start: 20080819, end: 20080819
  3. PEGASYS [Suspect]
     Indication: HEPATITIS C
     Dosage: 180 UG;QW;SUBCUTANEOUS
     Route: 058
     Dates: start: 20080204
  4. COPEGUS [Suspect]
     Indication: HEPATITIS C
     Dosage: 1000 MG;QD;ORAL
     Route: 048
     Dates: start: 20080204
  5. SOMA [Suspect]
     Dosage: 1050 MG;QD;ORAL; 1X
     Route: 048
     Dates: start: 20080419, end: 20080419
  6. SOMA [Suspect]
     Dosage: 1050 MG;QD;ORAL; 1X
     Route: 048
     Dates: start: 20080520
  7. TRAZODONE HCL [Suspect]
     Dosage: 100 MG;QD;1X
     Dates: start: 20070829, end: 20070927
  8. TRAZODONE HCL [Suspect]
     Dosage: 100 MG;QD;1X
     Dates: start: 20080819, end: 20080819
  9. XANAX [Concomitant]
  10. FLEXERIL [Concomitant]
  11. WELLBUTRIN XL [Concomitant]
  12. PHENERGAN HCL [Concomitant]
  13. ZOLOFT [Concomitant]
  14. DARVOCET [Concomitant]
  15. VITAMIN B-12 [Concomitant]
  16. LEXAPRO [Concomitant]

REACTIONS (7)
  - DEPRESSION [None]
  - INAPPROPRIATE SCHEDULE OF DRUG ADMINISTRATION [None]
  - INTENTIONAL OVERDOSE [None]
  - PAIN [None]
  - REFUSAL OF TREATMENT BY PATIENT [None]
  - SUICIDE ATTEMPT [None]
  - TREATMENT NONCOMPLIANCE [None]
